FAERS Safety Report 8388734-8 (Version None)
Quarter: 2012Q2

REPORT INFORMATION
  Report Type: 
  Country: None (occurrence: None)
  Receive Date: 20120528
  Receipt Date: 20120514
  Transmission Date: 20120825
  Serious: Yes (Other)
  Sender: FDA-Public Use
  Company Number: FR-BRISTOL-MYERS SQUIBB COMPANY-16624637

PATIENT
  Age: 34 Year
  Sex: Female

DRUGS (2)
  1. DOXORUBICIN HCL [Suspect]
     Indication: SARCOMA
  2. IFOSFAMIDE [Suspect]
     Indication: SARCOMA
     Dosage: 1DF= 5G/M3

REACTIONS (4)
  - PREGNANCY [None]
  - OLIGOHYDRAMNIOS [None]
  - ALOPECIA [None]
  - LIVE BIRTH [None]
